FAERS Safety Report 4722519-6 (Version None)
Quarter: 2005Q3

REPORT INFORMATION
  Report Type: 
  Country: None (occurrence: None)
  Receive Date: 20050720
  Receipt Date: 20050705
  Transmission Date: 20060218
  Serious: Yes (Hospitalization)
  Sender: FDA-Public Use
  Company Number: 2005100220

PATIENT
  Age: 68 Year
  Sex: Female

DRUGS (7)
  1. CELEBREX [Suspect]
     Indication: ILL-DEFINED DISORDER
     Dosage: 200 MG DAILY
     Dates: start: 20011101
  2. METOPROLOL [Concomitant]
  3. DIOVAN ^NOVARTIS^ (VALSARTAN) [Concomitant]
  4. HYDROCHLOROTHIAZIDE [Concomitant]
  5. PREMARIN [Concomitant]
  6. PREVACID [Concomitant]
  7. ALBUTEROL [Concomitant]

REACTIONS (9)
  - ACUTE MYOCARDIAL INFARCTION [None]
  - ANEURYSM [None]
  - ATRIAL SEPTAL DEFECT [None]
  - CARDIAC DISORDER [None]
  - CARDIOMEGALY [None]
  - ECHOCARDIOGRAM ABNORMAL [None]
  - MITRAL VALVE INCOMPETENCE [None]
  - RIGHT VENTRICULAR SYSTOLIC PRESSURE INCREASED [None]
  - TRICUSPID VALVE INCOMPETENCE [None]
